FAERS Safety Report 10012774 (Version 1)
Quarter: 2014Q1

REPORT INFORMATION
  Report Type: Spontaneous
  Country: US (occurrence: US)
  Receive Date: 20140314
  Receipt Date: 20140314
  Transmission Date: 20141002
  Serious: Yes (Other)
  Sender: FDA-Public Use
  Company Number: US-ROXANE LABORATORIES, INC.-2014-RO-00411RO

PATIENT
  Age: 39 Year
  Sex: Female

DRUGS (1)
  1. NAPROXEN [Suspect]
     Indication: HEADACHE
     Route: 065

REACTIONS (2)
  - Flushing [Unknown]
  - Palpitations [Unknown]
